FAERS Safety Report 8426199-8 (Version None)
Quarter: 2012Q2

REPORT INFORMATION
  Report Type: 
  Country: None (occurrence: None)
  Receive Date: 20120611
  Receipt Date: 20111128
  Transmission Date: 20120825
  Serious: Yes (Hospitalization)
  Sender: FDA-Public Use
  Company Number: US-MYLANLABS-2011S1022760

PATIENT
  Age: 78 Year
  Sex: Male
  Weight: 79.38 kg

DRUGS (4)
  1. DIOVAN [Concomitant]
     Indication: BLOOD PRESSURE
     Route: 048
     Dates: end: 20110901
  2. CYCLOBENZAPRINE HCL [Suspect]
     Indication: NECK PAIN
     Dosage: 1 TABLET BY MOUTH UP TO 3 TIMES DAILY
     Route: 048
     Dates: start: 20110912, end: 20110919
  3. CYCLOBENZAPRINE HCL [Suspect]
     Indication: MUSCLE SPASMS
     Dosage: 1 TABLET BY MOUTH UP TO 3 TIMES DAILY
     Route: 048
     Dates: start: 20110912, end: 20110919
  4. THYROID TAB [Concomitant]

REACTIONS (2)
  - BLOOD PRESSURE INCREASED [None]
  - THALAMIC INFARCTION [None]
